FAERS Safety Report 22315393 (Version 4)
Quarter: 2023Q2

REPORT INFORMATION
  Report Type: Spontaneous
  Country: US (occurrence: US)
  Receive Date: 20230512
  Receipt Date: 20230628
  Transmission Date: 20230722
  Serious: Yes (Hospitalization, Other)
  Sender: FDA-Public Use
  Company Number: US-PFIZER INC-PV202300082541

PATIENT
  Age: 59 Year
  Sex: Male
  Weight: 99.773 kg

DRUGS (5)
  1. SPIRONOLACTONE [Suspect]
     Active Substance: SPIRONOLACTONE
     Indication: Cardiac disorder
     Dosage: 25 MG, 1X/DAY
     Dates: start: 20210721, end: 202305
  2. ENTRESTO [Concomitant]
     Active Substance: SACUBITRIL\VALSARTAN
     Dosage: 97/103 MG
     Dates: start: 202107
  3. FARXIGA [Concomitant]
     Active Substance: DAPAGLIFLOZIN PROPANEDIOL
     Dosage: 10 MG
     Dates: start: 202107
  4. ELIQUIS [Concomitant]
     Active Substance: APIXABAN
     Dosage: 5 MG
     Dates: start: 202107
  5. ZOCOR [Concomitant]
     Active Substance: SIMVASTATIN
     Dosage: 40 MG

REACTIONS (5)
  - Dehydration [Not Recovered/Not Resolved]
  - Gynaecomastia [Not Recovered/Not Resolved]
  - Mental disorder [Unknown]
  - Malaise [Unknown]
  - Emotional disorder [Unknown]

NARRATIVE: CASE EVENT DATE: 20210701
